FAERS Safety Report 9621164 (Version 1)
Quarter: 2013Q4

REPORT INFORMATION
  Report Type: Spontaneous
  Country: US (occurrence: None)
  Receive Date: 20131011
  Receipt Date: 20131011
  Transmission Date: 20140711
  Serious: Yes (Other)
  Sender: FDA-Public Use
  Company Number: None

PATIENT
  Sex: Female

DRUGS (1)
  1. LUPRON [Suspect]
     Indication: UTERINE LEIOMYOMA
     Route: 030
     Dates: start: 20130919

REACTIONS (6)
  - Headache [None]
  - Vomiting [None]
  - Arthralgia [None]
  - Pain in extremity [None]
  - Chest pain [None]
  - Pain in jaw [None]
